FAERS Safety Report 18691200 (Version 3)
Quarter: 2021Q1

REPORT INFORMATION
  Report Type: Report from Study
  Country: US (occurrence: US)
  Receive Date: 20210101
  Receipt Date: 20210312
  Transmission Date: 20210419
  Serious: Yes (Death, Life-Threatening, Other)
  Sender: FDA-Public Use
  Company Number: NVSC2020US346320

PATIENT
  Age: 73 Year
  Sex: Male
  Weight: 110 kg

DRUGS (3)
  1. KYMRIAH [Suspect]
     Active Substance: TISAGENLECLEUCEL
     Indication: DIFFUSE LARGE B-CELL LYMPHOMA
     Dosage: UNK UNK, ONCE/SINGLE
     Route: 042
     Dates: start: 20201214
  2. FLUDARABINE [Concomitant]
     Active Substance: FLUDARABINE PHOSPHATE
     Indication: CHEMOTHERAPY
     Dosage: UNK
     Route: 065
  3. CYCLOPHOSPHAMIDE. [Concomitant]
     Active Substance: CYCLOPHOSPHAMIDE
     Indication: CHEMOTHERAPY
     Dosage: UNK
     Route: 065

REACTIONS (24)
  - Multiple organ dysfunction syndrome [Unknown]
  - Renal failure [Unknown]
  - Hepatotoxicity [Unknown]
  - Diffuse large B-cell lymphoma [Unknown]
  - Encephalopathy [Unknown]
  - Haemoglobin decreased [Unknown]
  - Hypoxia [Fatal]
  - Respiratory failure [Unknown]
  - Thrombocytopenia [Unknown]
  - Aphasia [Unknown]
  - Lymphocyte count decreased [Unknown]
  - Malignant neoplasm progression [Unknown]
  - Nephropathy toxic [Unknown]
  - Neutropenia [Unknown]
  - Cytopenia [Unknown]
  - Pulseless electrical activity [Fatal]
  - Pyrexia [Fatal]
  - Hypotension [Fatal]
  - Neurotoxicity [Recovered/Resolved]
  - Depressed level of consciousness [Unknown]
  - Iridocorneal endothelial syndrome [Unknown]
  - Cytokine release syndrome [Fatal]
  - Atrial fibrillation [Unknown]
  - Tremor [Unknown]

NARRATIVE: CASE EVENT DATE: 20201229
